FAERS Safety Report 8430387 (Version 2)
Quarter: 2012Q4

REPORT INFORMATION
  Report Type: 
  Country: US (occurrence: US)
  Receive Date: 20120228
  Receipt Date: 20120926
  Transmission Date: 20130627
  Serious: Yes (Hospitalization)
  Sender: FDA-Public Use
  Company Number: US-BAYER-2012-017473

PATIENT
  Age: 43 Year
  Sex: Female
  Weight: 95.24 kg

DRUGS (8)
  1. YAZ [Suspect]
     Indication: CONTRACEPTION
     Dosage: UNK
     Dates: start: 200608, end: 200711
  2. YAZ [Suspect]
     Indication: CONTRACEPTION
     Dosage: UNK
     Dates: start: 200608, end: 200712
  3. YASMIN [Suspect]
     Indication: CONTRACEPTION
     Dosage: UNK
     Dates: start: 2003, end: 200608
  4. ATENOLOL [Concomitant]
     Indication: BLOOD PRESSURE MANAGEMENT
     Dosage: UNK
     Dates: start: 2005, end: 2010
  5. SIMVASTIN [Concomitant]
     Dosage: UNK
  6. IMITREX [Concomitant]
     Indication: HEADACHE
     Dosage: UNK
     Dates: start: 2006, end: 2007
  7. WELCHOL [Concomitant]
     Dosage: UNK
     Dates: start: 200711, end: 2009
  8. KARIVA [Suspect]

REACTIONS (16)
  - Cerebellar infarction [None]
  - Pain [None]
  - General physical health deterioration [None]
  - Anxiety [None]
  - Emotional distress [None]
  - Asthenia [None]
  - Dysarthria [None]
  - Paraesthesia [None]
  - Neck pain [None]
  - Headache [None]
  - Memory impairment [None]
  - Dysphemia [None]
  - Sensation of heaviness [None]
  - Muscle fatigue [None]
  - Gait disturbance [None]
  - Fall [None]
